FAERS Safety Report 7043210-X (Version None)
Quarter: 2010Q4

REPORT INFORMATION
  Report Type: 
  Country: None (occurrence: None)
  Receive Date: 20101013
  Receipt Date: 20100113
  Transmission Date: 20110411
  Serious: No
  Sender: FDA-Public Use
  Company Number: US-ASTRAZENECA-2009SE33026

PATIENT
  Sex: Female
  Weight: 61.2 kg

DRUGS (5)
  1. SYMBICORT [Suspect]
     Indication: SEASONAL ALLERGY
     Dosage: 160/4.5 ONE PUFF
     Route: 055
  2. SINGULAIR [Concomitant]
  3. SECTRAL [Concomitant]
  4. SPIRIVA [Concomitant]
  5. ALLEGRA [Concomitant]

REACTIONS (2)
  - ASTHMA [None]
  - DRUG DOSE OMISSION [None]
